FAERS Safety Report 15624163 (Version 2)
Quarter: 2019Q2

REPORT INFORMATION
  Report Type: Spontaneous
  Country: CA (occurrence: CA)
  Receive Date: 20181116
  Receipt Date: 20190507
  Transmission Date: 20190711
  Serious: Yes (Other)
  Sender: FDA-Public Use
  Company Number: CA-ROCHE-2208925

PATIENT
  Age: 49 Year
  Sex: Female

DRUGS (2)
  1. OCREVUS [Suspect]
     Active Substance: OCRELIZUMAB
     Dosage: EVERY 6 MONTHS (300MG/10ML)
     Route: 042
  2. OCREVUS [Suspect]
     Active Substance: OCRELIZUMAB
     Indication: RELAPSING-REMITTING MULTIPLE SCLEROSIS
     Dosage: 300 MG IN 250 ML NACL 0.9% OVER 2.5 HOURS IV
     Route: 042
     Dates: start: 20181025

REACTIONS (7)
  - Infusion related reaction [Recovered/Resolved]
  - Tremor [Not Recovered/Not Resolved]
  - Infusion related reaction [Not Recovered/Not Resolved]
  - Depression [Unknown]
  - Diarrhoea [Unknown]
  - Musculoskeletal stiffness [Not Recovered/Not Resolved]
  - Tremor [Recovered/Resolved]

NARRATIVE: CASE EVENT DATE: 20181025
